FAERS Safety Report 15908441 (Version 2)
Quarter: 2019Q1

REPORT INFORMATION
  Report Type: Report from Study
  Country: DE (occurrence: DE)
  Receive Date: 20190204
  Receipt Date: 20190205
  Transmission Date: 20190417
  Serious: Yes (Life-Threatening, Hospitalization, Other)
  Sender: FDA-Public Use
  Company Number: DE-PFIZER INC-2019045279

PATIENT
  Age: 75 Year
  Sex: Male
  Weight: 88 kg

DRUGS (27)
  1. INEGY [Concomitant]
     Active Substance: EZETIMIBE\SIMVASTATIN
     Indication: ATRIAL FIBRILLATION
  2. CALCIUM FOLINATE [Suspect]
     Active Substance: LEUCOVORIN CALCIUM
     Dosage: 1000 MG, EVERY 2 WEEKS
     Route: 042
     Dates: start: 20140505, end: 20140506
  3. BEVACIZUMAB. [Suspect]
     Active Substance: BEVACIZUMAB
     Dosage: 660 MG
     Route: 042
     Dates: start: 20140616, end: 20140616
  4. ALLOPURINOL. [Concomitant]
     Active Substance: ALLOPURINOL
     Dosage: 100 MG, 1X/DAY
     Route: 065
  5. IRINOTECAN HCL [Suspect]
     Active Substance: IRINOTECAN HYDROCHLORIDE
     Dosage: 115 MG, EVERY 2 WEEKS
     Route: 042
     Dates: start: 20140505, end: 20140707
  6. TAMSULOSIN [Concomitant]
     Active Substance: TAMSULOSIN
     Dosage: 0.4 MG, 1X/DAY
     Route: 065
  7. CALCIUM FOLINATE [Suspect]
     Active Substance: LEUCOVORIN CALCIUM
     Indication: COLORECTAL CANCER
     Dosage: 1000 MG, WEEKLY
     Route: 042
     Dates: start: 20140317, end: 20140716
  8. BEVACIZUMAB. [Suspect]
     Active Substance: BEVACIZUMAB
     Indication: COLORECTAL CANCER
     Dosage: 440 MG (5 MG/KG), EVERY 2 WEEKS
     Route: 042
     Dates: start: 20140317, end: 20140505
  9. COLECALCIFEROL [Concomitant]
     Active Substance: CHOLECALCIFEROL
     Dosage: 4000 IU, WEEKLY
     Route: 065
  10. PREDNISOLON [PREDNISOLONE] [Concomitant]
     Active Substance: PREDNISOLONE
     Dosage: 2.5 MG, 1X/DAY
  11. IRINOTECAN HCL [Suspect]
     Active Substance: IRINOTECAN HYDROCHLORIDE
     Indication: COLORECTAL CANCER
     Dosage: 115 MG, WEEKLY
     Route: 042
     Dates: start: 20140317, end: 20140616
  12. INEGY [Concomitant]
     Active Substance: EZETIMIBE\SIMVASTATIN
     Indication: HYPERCHOLESTEROLAEMIA
  13. PANTOPRAZOLE [Concomitant]
     Active Substance: PANTOPRAZOLE
     Dosage: 40 MG, 1X/DAY
     Route: 065
  14. ENOXAPARIN [Concomitant]
     Active Substance: ENOXAPARIN
     Dosage: 0.8 ML, 1X/DAY
     Route: 058
  15. CALCIUM FOLINATE [Suspect]
     Active Substance: LEUCOVORIN CALCIUM
     Dosage: 1000 MG, EVERY 2 WEEKS
     Route: 042
     Dates: start: 20140707, end: 20140708
  16. 5-FU [FLUOROURACIL] [Suspect]
     Active Substance: FLUOROURACIL
     Indication: COLORECTAL CANCER
     Dosage: 2900 MG, WEEKLY
     Route: 041
     Dates: start: 20140317, end: 20140617
  17. 5-FU [FLUOROURACIL] [Suspect]
     Active Substance: FLUOROURACIL
     Dosage: 2900 MG, EVERY 2 WEEKS
     Route: 042
     Dates: start: 20140505, end: 20140506
  18. SIMVASTATIN. [Concomitant]
     Active Substance: SIMVASTATIN
     Dosage: 10 MG, 1X/DAY
     Route: 065
  19. AMIODARONE [Concomitant]
     Active Substance: AMIODARONE
     Dosage: 200 MG, 1X/DAY
     Route: 065
  20. LOPERAMIDE [Concomitant]
     Active Substance: LOPERAMIDE
     Dosage: 8 MG, 1X/DAY
     Route: 065
  21. TORASEMIDE [Concomitant]
     Active Substance: TORSEMIDE
     Dosage: 10 MG, 1X/DAY
     Route: 065
  22. TORASEMIDE [Concomitant]
     Active Substance: TORSEMIDE
     Indication: HYPERTENSION
     Dosage: 0.4 MG, 1X/DAY
     Route: 065
  23. PHENPROCOUMON [Concomitant]
     Active Substance: PHENPROCOUMON
     Indication: MYOCARDIAL INFARCTION
     Dosage: 3 MG, ACCORDING TO INR
     Route: 058
  24. TRAMADOL. [Concomitant]
     Active Substance: TRAMADOL
     Dosage: 300 MG, 1X/DAY
     Route: 065
  25. 5-FU [FLUOROURACIL] [Suspect]
     Active Substance: FLUOROURACIL
     Dosage: 2900 MG, EVERY 2 WEEKS
     Route: 042
     Dates: start: 20140707, end: 20140708
  26. INEGY [Concomitant]
     Active Substance: EZETIMIBE\SIMVASTATIN
     Indication: POLYNEUROPATHY
     Dosage: 10 MG/20 MG, ONCE DAILY
     Route: 048
  27. PARACETAMOL [Concomitant]
     Active Substance: ACETAMINOPHEN
     Dosage: 4000 MG, 1X/DAY
     Route: 065

REACTIONS (9)
  - Rib fracture [Recovered/Resolved]
  - Seizure [Recovered/Resolved]
  - Atrial fibrillation [Recovered/Resolved]
  - Fall [Unknown]
  - Syncope [Recovered/Resolved]
  - Concussion [Recovered/Resolved]
  - General physical health deterioration [Recovered/Resolved]
  - Urosepsis [Recovered/Resolved]
  - Haemothorax [Unknown]

NARRATIVE: CASE EVENT DATE: 20140516
